FAERS Safety Report 8398411 (Version 2)
Quarter: 2012Q4

REPORT INFORMATION
  Report Type: 
  Country: IE (occurrence: IE)
  Receive Date: 20120209
  Receipt Date: 20121227
  Transmission Date: 20130627
  Serious: Yes (Hospitalization, Other)
  Sender: FDA-Public Use
  Company Number: IE-NOVOPROD-316071

PATIENT
  Age: 5 Year
  Sex: Female
  Weight: 9.8 kg

DRUGS (2)
  1. NORDITROPIN SIMPLEXX [Suspect]
     Indication: SILVER-RUSSELL SYNDROME
     Dosage: 0.3 mg, qd
     Route: 065
     Dates: start: 20090707, end: 20100920
  2. LEVOTHYROXINE SODIUM [Concomitant]
     Indication: HYPOTHYROIDISM
     Dosage: 25 ?g, qd
     Route: 048
     Dates: start: 20091028

REACTIONS (2)
  - Sleep apnoea syndrome [Recovered/Resolved]
  - Tonsillar hypertrophy [Recovered/Resolved]
